FAERS Safety Report 5612535-4 (Version None)
Quarter: 2008Q1

REPORT INFORMATION
  Report Type: 
  Country: None (occurrence: None)
  Receive Date: 20080128
  Receipt Date: 20080123
  Transmission Date: 20080703
  Serious: Yes (Other)
  Sender: FDA-Public Use
  Company Number: 2007338166

PATIENT
  Sex: Female

DRUGS (1)
  1. LISTERINE WHITENING QUICK DISSOLVING STRIPS (NO ACTIVE INGREDIENT) [Suspect]
     Indication: DENTAL CARE
     Dosage: UNSPECIFIED, TWICE DAILY; ORAL
     Route: 048

REACTIONS (2)
  - GINGIVAL PAIN [None]
  - PHARMACEUTICAL PRODUCT COMPLAINT [None]
